FAERS Safety Report 19610389 (Version 2)
Quarter: 2021Q3

REPORT INFORMATION
  Report Type: Report from Study
  Country: US (occurrence: US)
  Receive Date: 20210726
  Receipt Date: 20210726
  Transmission Date: 20211014
  Serious: Yes (Other)
  Sender: FDA-Public Use
  Company Number: US-JNJFOC-20210732338

PATIENT
  Age: 35 Year
  Sex: Male

DRUGS (1)
  1. SPRAVATO [Suspect]
     Active Substance: ESKETAMINE
     Indication: DEPRESSION
     Dosage: 84 MG, 1 TOTAL DOSE (CURRENT TREATMENT SESSION)
     Dates: start: 20210715, end: 20210715

REACTIONS (5)
  - Sedation [Recovered/Resolved]
  - Dissociation [Recovered/Resolved]
  - Suicidal ideation [Not Recovered/Not Resolved]
  - Euphoric mood [Unknown]
  - Feeling abnormal [Unknown]

NARRATIVE: CASE EVENT DATE: 20210715
